FAERS Safety Report 7393183-5 (Version None)
Quarter: 2011Q2

REPORT INFORMATION
  Report Type: 
  Country: None (occurrence: None)
  Receive Date: 20110404
  Receipt Date: 20110321
  Transmission Date: 20111010
  Serious: Yes (Other)
  Sender: FDA-Public Use
  Company Number: ES-MYLANLABS-2011S1006736

PATIENT

DRUGS (3)
  1. CLONAZEPAM [Concomitant]
  2. BUSULFAN [Suspect]
     Indication: BONE MARROW CONDITIONING REGIMEN
     Dosage: OVER 4 DAYS
     Route: 048
  3. MELPHALAN [Suspect]
     Indication: BONE MARROW CONDITIONING REGIMEN
     Route: 042

REACTIONS (1)
  - ENGRAFTMENT SYNDROME [None]
